FAERS Safety Report 4666959-2 (Version None)
Quarter: 2005Q2

REPORT INFORMATION
  Report Type: 
  Country: None (occurrence: None)
  Receive Date: 20050518
  Receipt Date: 20040730
  Transmission Date: 20051028
  Serious: Yes (Other)
  Sender: FDA-Public Use
  Company Number: 2004226433US

PATIENT
  Age: 56 Year
  Sex: Female

DRUGS (3)
  1. PROVERA [Suspect]
     Dates: start: 20010101, end: 20010201
  2. PREMARIN [Suspect]
     Dates: start: 19951101, end: 20001031
  3. MEDROXYPROGESTERONE ACETATE [Suspect]
     Dates: start: 19951101, end: 20001031

REACTIONS (1)
  - DEEP VEIN THROMBOSIS [None]
